FAERS Safety Report 19408004 (Version 1)
Quarter: 2021Q2

REPORT INFORMATION
  Report Type: Spontaneous
  Country: CN (occurrence: CN)
  Receive Date: 20210611
  Receipt Date: 20210611
  Transmission Date: 20210717
  Serious: Yes (Other)
  Sender: FDA-Public Use
  Company Number: CN-PFIZER INC-2021663179

PATIENT
  Age: 6 Day
  Sex: Male

DRUGS (2)
  1. NORVANCOMYCIN HYDROCHLORIDE [Suspect]
     Active Substance: NORVANCOMYCIN HYDROCHLORIDE
     Dosage: UNK
     Dates: start: 20140421
  2. MEPEM [Suspect]
     Active Substance: MEROPENEM
     Dosage: UNK
     Dates: start: 20140421

REACTIONS (5)
  - Multiple organ dysfunction syndrome [Unknown]
  - Acidosis [Unknown]
  - Sepsis neonatal [Unknown]
  - Stress ulcer [Unknown]
  - Anaemia neonatal [Unknown]

NARRATIVE: CASE EVENT DATE: 20140422
